FAERS Safety Report 7624870-9 (Version None)
Quarter: 2011Q3

REPORT INFORMATION
  Report Type: 
  Country: None (occurrence: None)
  Receive Date: 20110720
  Receipt Date: 20110715
  Transmission Date: 20111222
  Serious: Yes (Other)
  Sender: FDA-Public Use
  Company Number: DK-ABBOTT-10P-044-0690585-00

PATIENT
  Sex: Female

DRUGS (5)
  1. HUMIRA [Suspect]
     Indication: PSORIATIC ARTHROPATHY
     Dates: start: 20081016
  2. HUMIRA [Suspect]
     Dates: start: 20110414
  3. TODOLAC [Concomitant]
     Indication: PSORIATIC ARTHROPATHY
  4. METHOTREXATE UNKNOWN MAH [Concomitant]
     Indication: SPONDYLITIS
     Dates: start: 20070426
  5. REMICADE [Concomitant]
     Indication: PSORIATIC ARTHROPATHY
     Dates: start: 20080724, end: 20081016

REACTIONS (7)
  - VISUAL IMPAIRMENT [None]
  - VISUAL ACUITY REDUCED [None]
  - SENSORY DISTURBANCE [None]
  - OPTIC NEURITIS [None]
  - VISUAL FIELD DEFECT [None]
  - COLOUR BLINDNESS ACQUIRED [None]
  - PSORIATIC ARTHROPATHY [None]
